FAERS Safety Report 6520036-4 (Version None)
Quarter: 2009Q4

REPORT INFORMATION
  Report Type: 
  Country: None (occurrence: None)
  Receive Date: 20091229
  Receipt Date: 20091221
  Transmission Date: 20100525
  Serious: Yes (Hospitalization)
  Sender: FDA-Public Use
  Company Number: CH-ROCHE-675972

PATIENT
  Sex: Female

DRUGS (4)
  1. TAMIFLU [Suspect]
     Indication: INFLUENZA
     Dosage: RECEIVED FOR 2 DAYS
     Route: 048
     Dates: start: 20091201, end: 20091201
  2. TAMIFLU [Suspect]
     Dosage: DOSE REDUCED, RECEIVED FOR 1 DAY
     Route: 048
     Dates: start: 20091201, end: 20091201
  3. IMUREK [Concomitant]
     Indication: RHEUMATOID ARTHRITIS
  4. PREDNISONE [Concomitant]
     Indication: RHEUMATOID ARTHRITIS

REACTIONS (2)
  - NEUTROPENIA [None]
  - RENAL FAILURE [None]
